FAERS Safety Report 17562484 (Version 1)
Quarter: 2020Q1

REPORT INFORMATION
  Report Type: Report from Study
  Country: US (occurrence: US)
  Receive Date: 20200319
  Receipt Date: 20200319
  Transmission Date: 20200409
  Serious: Yes (Other)
  Sender: FDA-Public Use
  Company Number: NVSC2020US073578

PATIENT
  Age: 14 Year
  Sex: Female

DRUGS (1)
  1. KYMRIAH [Suspect]
     Active Substance: TISAGENLECLEUCEL
     Indication: LYMPHOCYTIC LEUKAEMIA
     Dosage: UNK
     Route: 041

REACTIONS (11)
  - Hypotension [Recovered/Resolved]
  - Hypoxia [Recovered/Resolved]
  - Neurotoxicity [Recovered/Resolved]
  - Cytokine release syndrome [Recovered/Resolved]
  - White blood cell count increased [Unknown]
  - Lymphocyte count increased [Unknown]
  - Pyrexia [Recovered/Resolved]
  - Agitation [Recovered/Resolved]
  - Platelet count increased [Unknown]
  - Confusional state [Recovered/Resolved]
  - Neutrophil count increased [Unknown]
